FAERS Safety Report 8836030 (Version 1)
Quarter: 2012Q4

REPORT INFORMATION
  Report Type: 
  Country: US (occurrence: US)
  Receive Date: 20121011
  Receipt Date: 20121011
  Transmission Date: 20130627
  Serious: No
  Sender: FDA-Public Use
  Company Number: US-PFIZER INC-2012248921

PATIENT
  Sex: Male

DRUGS (1)
  1. INSPRA [Suspect]
     Dosage: UNK

REACTIONS (1)
  - Confusional state [Unknown]
